FAERS Safety Report 5433358-5 (Version None)
Quarter: 2007Q3

REPORT INFORMATION
  Report Type: 
  Country: None (occurrence: None)
  Receive Date: 20070831
  Receipt Date: 20070621
  Transmission Date: 20080115
  Serious: No
  Sender: FDA-Public Use
  Company Number: A0658786A

PATIENT
  Age: 37 Year
  Sex: Female

DRUGS (2)
  1. ALLI [Suspect]
     Route: 048
     Dates: start: 20070615
  2. ANTIFUNGAL [Concomitant]
     Indication: CANDIDIASIS

REACTIONS (1)
  - RECTAL DISCHARGE [None]
